FAERS Safety Report 6070755-1 (Version None)
Quarter: 2009Q1

REPORT INFORMATION
  Report Type: 
  Country: None (occurrence: None)
  Receive Date: 20090209
  Receipt Date: 20090130
  Transmission Date: 20090719
  Serious: Yes (Other)
  Sender: FDA-Public Use
  Company Number: FR-ABBOTT-09P-056-0500909-00

PATIENT
  Age: 18 Year
  Sex: Male

DRUGS (2)
  1. DEPAKENE [Suspect]
     Indication: EPILEPSY
     Route: 048
     Dates: end: 20090109
  2. DEPAKENE [Suspect]
     Route: 048
     Dates: start: 20090110

REACTIONS (2)
  - DRUG LEVEL DECREASED [None]
  - EPILEPSY [None]
